FAERS Safety Report 6060408-8 (Version None)
Quarter: 2009Q1

REPORT INFORMATION
  Report Type: 
  Country: None (occurrence: None)
  Receive Date: 20090129
  Receipt Date: 20090129
  Transmission Date: 20090719
  Serious: Yes (Hospitalization)
  Sender: FDA-Public Use
  Company Number: None

PATIENT
  Age: 87 Year
  Sex: Male
  Weight: 83.9 kg

DRUGS (2)
  1. METOPROLOL TARTRATE [Suspect]
     Indication: CARDIAC FAILURE CONGESTIVE
     Dosage: 12.5 MG -1/4 TABLET? DAILY PO
     Route: 048
     Dates: start: 20081228, end: 20090105
  2. METOPROLOL TARTRATE [Suspect]
     Indication: MYOCARDIAL INFARCTION
     Dosage: 12.5 MG -1/4 TABLET? DAILY PO
     Route: 048
     Dates: start: 20081228, end: 20090105

REACTIONS (2)
  - DIZZINESS [None]
  - SINUS BRADYCARDIA [None]
